FAERS Safety Report 18741040 (Version 1)
Quarter: 2021Q1

REPORT INFORMATION
  Report Type: Spontaneous
  Country: AU (occurrence: AU)
  Receive Date: 20210114
  Receipt Date: 20210114
  Transmission Date: 20210419
  Serious: Yes (Other)
  Sender: FDA-Public Use
  Company Number: AU-MYLANLABS-2021M1002086

PATIENT
  Age: 35 Year
  Sex: Female

DRUGS (9)
  1. URSODEOXYCHOLIC ACID [Suspect]
     Active Substance: URSODIOL
     Dosage: 750 MILLIGRAM, TID DOSE WAS UP?TITRATED TO 750 MG THRICE...
     Route: 065
  2. NALTREXONE [Suspect]
     Active Substance: NALTREXONE
     Indication: PRURITUS
     Dosage: PRESCRIBED AT GESTATION WEEK? 33
     Route: 048
  3. NALOXONE [Suspect]
     Active Substance: NALOXONE
     Indication: PRURITUS
     Route: 042
  4. URSODEOXYCHOLIC ACID [Suspect]
     Active Substance: URSODIOL
     Indication: CHOLESTASIS OF PREGNANCY
     Dosage: COMMENCED AT GESTATION WEEK?20
     Route: 065
  5. COLESTYRAMINE [Suspect]
     Active Substance: CHOLESTYRAMINE
     Indication: CHOLESTASIS OF PREGNANCY
     Dosage: DRUG STARTED AT GESTATION WEEK? 31+1
     Route: 065
  6. THYROXINE [Suspect]
     Active Substance: LEVOTHYROXINE
     Indication: HYPOTHYROIDISM
     Route: 065
  7. COLESTYRAMINE [Suspect]
     Active Substance: CHOLESTYRAMINE
     Dosage: 8 GRAM, BID(DOSE UP?TITRATED TO 8 G BID
     Route: 065
  8. OXYCODONE [Suspect]
     Active Substance: OXYCODONE
     Indication: PRODUCT USED FOR UNKNOWN INDICATION
     Route: 065
  9. RIFAMPICIN [Suspect]
     Active Substance: RIFAMPIN
     Indication: CHOLESTASIS OF PREGNANCY
     Dosage: DRUG COMMENCED AT GESTATION WEEK ? 29+6..
     Route: 065

REACTIONS (4)
  - Pruritus [Recovered/Resolved]
  - Drug ineffective [Unknown]
  - Maternal exposure during pregnancy [Recovered/Resolved]
  - Normal newborn [Recovered/Resolved]
